FAERS Safety Report 9995361 (Version 1)
Quarter: 2014Q1

REPORT INFORMATION
  Report Type: Spontaneous
  Country: US (occurrence: None)
  Receive Date: 20140307
  Receipt Date: 20140307
  Transmission Date: 20141002
  Serious: Yes (Disabling)
  Sender: FDA-Public Use
  Company Number: None

PATIENT
  Age: 39 Year
  Sex: Female
  Weight: 73.48 kg

DRUGS (1)
  1. LEVOTHYROXINE [Suspect]
     Indication: THYROID HORMONE REPLACEMENT THERAPY
     Route: 048
     Dates: start: 20140115, end: 20140211

REACTIONS (4)
  - Palpitations [None]
  - Asthenia [None]
  - Hypoaesthesia [None]
  - Dizziness [None]
